FAERS Safety Report 7101861-8 (Version None)
Quarter: 2010Q4

REPORT INFORMATION
  Report Type: 
  Country: None (occurrence: None)
  Receive Date: 20101108
  Receipt Date: 20040402
  Transmission Date: 20110411
  Serious: Yes (Death, Hospitalization)
  Sender: FDA-Public Use
  Company Number: 6006008

PATIENT
  Age: 47 Year
  Sex: Female

DRUGS (7)
  1. HYDROXOCOBALAMIN [Suspect]
     Indication: GAS POISONING
     Dosage: 10 GM (2.5 GM, 4 IN 1 D) INTRAVENOUS DRIP
     Route: 041
     Dates: start: 20031010, end: 20031010
  2. ADRENALINE RENAUDIN (EPINEPHRINE) (3 MG, INJECTION) [Concomitant]
  3. HYPNOVEL (MIDAZOLAM HYDROCHLORIDE) (INTRAVENOUS INFUSION) [Concomitant]
  4. FENTANYL [Concomitant]
  5. TEGRETOL-XR [Concomitant]
  6. MODECATE 125 (FLUPHENAZINE DECANOATE) (SOLUTION FOR INJECTION) [Concomitant]
  7. TERCIAN (CYAMEMAZINE) (100 MG, TABLET) [Concomitant]

REACTIONS (11)
  - BRAIN DEATH [None]
  - CARBON MONOXIDE POISONING [None]
  - CARDIO-RESPIRATORY ARREST [None]
  - HAEMOGLOBIN DECREASED [None]
  - RENAL DISORDER [None]
  - RENAL ISCHAEMIA [None]
  - RENAL TUBULAR NECROSIS [None]
  - SHOCK [None]
  - SKIN DISCOLOURATION [None]
  - TOXOPLASMOSIS [None]
  - VIRAL TEST POSITIVE [None]
